FAERS Safety Report 10011239 (Version 1)
Quarter: 2014Q1

REPORT INFORMATION
  Report Type: Spontaneous
  Country: US (occurrence: None)
  Receive Date: 20140312
  Receipt Date: 20140312
  Transmission Date: 20141002
  Serious: Yes (Other)
  Sender: FDA-Public Use
  Company Number: GB-DEXPHARM-20140053

PATIENT
  Sex: Female

DRUGS (11)
  1. ZOLMITRIPTAN [Suspect]
  2. OMEPRAZOLE [Suspect]
     Indication: BREAST CANCER
     Route: 048
  3. DIAZEPAM [Suspect]
  4. PARACETAMOL [Suspect]
     Indication: BREAST CANCER
  5. LORAZEPAM [Suspect]
     Indication: BREAST CANCER
  6. PREDNISONE [Suspect]
  7. DEXAMETHASONE [Suspect]
  8. METOCLOPRAMIDE [Suspect]
  9. IBUPROFEN [Suspect]
     Indication: BREAST CANCER
  10. MULTIVITAMIN [Suspect]
  11. ZOMIG [Suspect]
     Route: 048

REACTIONS (2)
  - Drug interaction [None]
  - Breast cancer female [None]
